FAERS Safety Report 6222980-4 (Version None)
Quarter: 2009Q2

REPORT INFORMATION
  Report Type: 
  Country: None (occurrence: None)
  Receive Date: 20090609
  Receipt Date: 20090528
  Transmission Date: 20091009
  Serious: Yes (Other)
  Sender: FDA-Public Use
  Company Number: 2009AP001955

PATIENT
  Age: 72 Year
  Sex: Male

DRUGS (5)
  1. TERBINAFINE HCL [Suspect]
     Indication: ONYCHOMYCOSIS
     Dosage: 250 MG, PO
     Route: 048
     Dates: start: 20081209, end: 20090312
  2. ASPIRIN [Concomitant]
  3. ATENOLOL [Concomitant]
  4. ATORVASTATIN CALCIUM [Concomitant]
  5. DICLOFENAC (DICLOFENAC) [Concomitant]

REACTIONS (1)
  - ERYTHEMA MULTIFORME [None]
